FAERS Safety Report 5902377-4 (Version None)
Quarter: 2008Q3

REPORT INFORMATION
  Report Type: 
  Country: None (occurrence: None)
  Receive Date: 20080919
  Receipt Date: 20080710
  Transmission Date: 20090109
  Serious: No
  Sender: FDA-Public Use
  Company Number: US-WYE-H05052108

PATIENT
  Age: 28 Year
  Sex: Male
  Weight: 68.1 kg

DRUGS (2)
  1. PRISTIQ [Suspect]
     Indication: ANXIETY
     Dosage: 50 MG 1X PER 1 DAY, ORAL
     Route: 048
     Dates: start: 20080709
  2. LORAZEPAM [Concomitant]

REACTIONS (4)
  - ANXIETY [None]
  - NAUSEA [None]
  - TENSION [None]
  - TREMOR [None]
